FAERS Safety Report 5890799-X (Version None)
Quarter: 2008Q3

REPORT INFORMATION
  Report Type: 
  Country: None (occurrence: None)
  Receive Date: 20080922
  Receipt Date: 20080913
  Transmission Date: 20090109
  Serious: Yes (Hospitalization, Other)
  Sender: FDA-Public Use
  Company Number: US-BAYER-200812359BCC

PATIENT
  Age: 13 Year
  Sex: Female
  Weight: 68 kg

DRUGS (1)
  1. MIDOL [Suspect]
     Indication: DRUG USE FOR UNKNOWN INDICATION
     Route: 048
     Dates: start: 20080606

REACTIONS (2)
  - UNEVALUABLE EVENT [None]
  - VOMITING [None]
